FAERS Safety Report 6724362-5 (Version None)
Quarter: 2010Q2

REPORT INFORMATION
  Report Type: 
  Country: None (occurrence: None)
  Receive Date: 20100513
  Receipt Date: 20100503
  Transmission Date: 20101027
  Serious: Yes (Hospitalization)
  Sender: FDA-Public Use
  Company Number: ES-JNJFOC-20100501157

PATIENT
  Age: 29 Year
  Sex: Male

DRUGS (2)
  1. PALIPERIDONE [Suspect]
     Indication: SCHIZOPHRENIA
     Route: 048
  2. PALIPERIDONE [Suspect]
     Route: 048

REACTIONS (1)
  - HYPERTENSION [None]
